FAERS Safety Report 9841912 (Version 1)
Quarter: 2013Q4

REPORT INFORMATION
  Report Type: Spontaneous
  Country: US (occurrence: None)
  Receive Date: 20131219
  Receipt Date: 20131219
  Transmission Date: 20140711
  Serious: Yes (Hospitalization)
  Sender: FDA-Public Use
  Company Number: 163-20785-13050759

PATIENT
  Sex: Male

DRUGS (3)
  1. THALOMID (THALIDOMIDE) (50 MILLIGRAM, CAPSULES) [Suspect]
     Dosage: 50 MG, 28 IN 28 D, PO
     Route: 048
     Dates: start: 20130413
  2. LOVENOX (HEPARIN-FRACTION, SODIUM SALT) [Concomitant]
  3. CENTRUM (CENTRUM) (TABLETS) [Concomitant]

REACTIONS (1)
  - Plasma cell myeloma [None]
